FAERS Safety Report 4868186-2 (Version None)
Quarter: 2005Q4

REPORT INFORMATION
  Report Type: 
  Country: None (occurrence: None)
  Receive Date: 20051229
  Receipt Date: 20051220
  Transmission Date: 20060501
  Serious: Yes (Hospitalization)
  Sender: FDA-Public Use
  Company Number: JP-BRISTOL-MYERS SQUIBB COMPANY-13226113

PATIENT
  Age: 7 Year
  Sex: Male

DRUGS (3)
  1. PARAPLATIN [Suspect]
     Indication: NEUROBLASTOMA
  2. LASTET [Suspect]
     Indication: NEUROBLASTOMA
  3. IFOMIDE [Suspect]
     Indication: NEUROBLASTOMA

REACTIONS (3)
  - BONE MARROW FAILURE [None]
  - LIVER ABSCESS [None]
  - LUNG ABSCESS [None]
